FAERS Safety Report 5707879-1 (Version None)
Quarter: 2008Q2

REPORT INFORMATION
  Report Type: 
  Country: None (occurrence: None)
  Receive Date: 20080417
  Receipt Date: 20080417
  Transmission Date: 20081010
  Serious: Yes (Hospitalization)
  Sender: FDA-Public Use
  Company Number: None

PATIENT
  Age: 25 Year
  Sex: Female
  Weight: 56.7 kg

DRUGS (2)
  1. HEPARIN [Suspect]
     Indication: DIALYSIS
     Dates: start: 20080203, end: 20080203
  2. HEPARIN [Suspect]
     Indication: DIALYSIS
     Dates: start: 20080205, end: 20080205

REACTIONS (1)
  - PLATELET COUNT DECREASED [None]
